FAERS Safety Report 11433556 (Version 1)
Quarter: 2015Q3

REPORT INFORMATION
  Report Type: Spontaneous
  Country: SE (occurrence: SE)
  Receive Date: 20150831
  Receipt Date: 20150831
  Transmission Date: 20151125
  Serious: Yes (Other)
  Sender: FDA-Public Use
  Company Number: SE-BRISTOL-MYERS SQUIBB COMPANY-19855840

PATIENT
  Age: 47 Year
  Sex: Female

DRUGS (1)
  1. YERVOY [Suspect]
     Active Substance: IPILIMUMAB
     Indication: METASTATIC NEOPLASM
     Dosage: UNK
     Route: 042
     Dates: start: 2012

REACTIONS (6)
  - Lymphoedema [Unknown]
  - Surgery [Unknown]
  - Wound infection [Unknown]
  - Diarrhoea [Recovered/Resolved with Sequelae]
  - Malignant neoplasm progression [Unknown]
  - Fatigue [Unknown]
